FAERS Safety Report 14120537 (Version 1)
Quarter: 2017Q4

REPORT INFORMATION
  Report Type: Spontaneous
  Country: FR (occurrence: FR)
  Receive Date: 20171024
  Receipt Date: 20171024
  Transmission Date: 20180321
  Serious: Yes (Life-Threatening, Hospitalization)
  Sender: FDA-Public Use
  Company Number: FR-JNJFOC-20171025868

PATIENT
  Age: 66 Year
  Sex: Female

DRUGS (6)
  1. DIAMICRON [Concomitant]
     Active Substance: GLICLAZIDE
     Route: 065
  2. TEMERIT [Concomitant]
     Active Substance: NEBIVOLOL
     Route: 065
  3. XARELTO [Suspect]
     Active Substance: RIVAROXABAN
     Indication: PULMONARY EMBOLISM
     Route: 048
     Dates: start: 201707
  4. METFORMINE [Suspect]
     Active Substance: METFORMIN HYDROCHLORIDE
     Indication: TYPE 2 DIABETES MELLITUS
     Route: 048
  5. BACTRIM [Suspect]
     Active Substance: SULFAMETHOXAZOLE\TRIMETHOPRIM
     Indication: URINARY TRACT INFECTION
     Dosage: 1 DF, BID
     Route: 048
     Dates: start: 20170917, end: 20171001
  6. PLAVIX [Concomitant]
     Active Substance: CLOPIDOGREL BISULFATE
     Route: 065

REACTIONS (7)
  - Thrombocytopenia [Recovering/Resolving]
  - Dyspnoea [Recovered/Resolved]
  - Aplastic anaemia [Recovering/Resolving]
  - Fatigue [Unknown]
  - Hepatitis [Recovered/Resolved]
  - Acute hepatic failure [Recovering/Resolving]
  - Lactic acidosis [Unknown]

NARRATIVE: CASE EVENT DATE: 201710
